FAERS Safety Report 15686138 (Version 1)
Quarter: 2018Q4

REPORT INFORMATION
  Report Type: Spontaneous
  Country: JP (occurrence: JP)
  Receive Date: 20181204
  Receipt Date: 20181204
  Transmission Date: 20190205
  Serious: Yes (Other)
  Sender: FDA-Public Use
  Company Number: JP-BRISTOL-MYERS SQUIBB COMPANY-BMS-2018-112006

PATIENT
  Sex: Female

DRUGS (1)
  1. KENACORT-A [Suspect]
     Active Substance: TRIAMCINOLONE
     Indication: SEASONAL ALLERGY
     Dosage: UNK
     Route: 030
     Dates: start: 2017

REACTIONS (1)
  - Injection site necrosis [Unknown]

NARRATIVE: CASE EVENT DATE: 2018
